FAERS Safety Report 4604110-5 (Version None)
Quarter: 2005Q1

REPORT INFORMATION
  Report Type: 
  Country: None (occurrence: None)
  Receive Date: 20050308
  Receipt Date: 20050308
  Transmission Date: 20050727
  Serious: Yes (Hospitalization)
  Sender: FDA-Public Use
  Company Number: None

PATIENT
  Age: 55 Year
  Sex: Male
  Weight: 76.2043 kg

DRUGS (8)
  1. CYTOXAN [Suspect]
     Indication: LYMPHOMA
     Dosage: 1418 MG IV Q 21 DAY
     Route: 042
     Dates: start: 20050203
  2. VINCRISTINE [Suspect]
     Indication: LYMPHOMA
     Dosage: 2 MG IV Q 21 DAY
     Route: 042
     Dates: start: 20050203
  3. ADRIAMYCIN PFS [Suspect]
     Indication: LYMPHOMA
     Dosage: 95 MG IV Q 21 DAYS
     Route: 042
     Dates: start: 20050203
  4. PREDNISONE [Suspect]
     Indication: LYMPHOMA
     Dosage: 100 MG PO X 5 DAYS Q 21 DYS
     Route: 048
     Dates: start: 20050203
  5. RITUXAN [Suspect]
     Indication: LYMPHOMA
     Dosage: 709 MG IV Q 21 DAYS
     Route: 042
     Dates: start: 20050201
  6. DEXAMETHASONE [Concomitant]
  7. BENADRYL [Concomitant]
  8. ACETAMINOPHEN [Concomitant]

REACTIONS (2)
  - CHEST PAIN [None]
  - LOBAR PNEUMONIA [None]
